FAERS Safety Report 19275697 (Version 1)
Quarter: 2021Q2

REPORT INFORMATION
  Report Type: Spontaneous
  Country: US (occurrence: US)
  Receive Date: 20210519
  Receipt Date: 20210519
  Transmission Date: 20210717
  Serious: Yes (Other)
  Sender: FDA-Public Use
  Company Number: US-CELGENEUS-GBR-20210503362

PATIENT
  Age: 61 Year
  Sex: Male

DRUGS (17)
  1. REVLIMID [Suspect]
     Active Substance: LENALIDOMIDE
     Indication: CENTRAL NERVOUS SYSTEM LYMPHOMA
     Dosage: 10 MILLIGRAM
     Route: 048
     Dates: start: 201409
  2. REVLIMID [Suspect]
     Active Substance: LENALIDOMIDE
     Dosage: 17.5 MILLIGRAM
     Route: 048
     Dates: start: 201709
  3. REVLIMID [Suspect]
     Active Substance: LENALIDOMIDE
     Dosage: 5?20 MG
     Route: 048
     Dates: start: 201712
  4. REVLIMID [Suspect]
     Active Substance: LENALIDOMIDE
     Dosage: 17.5?5 MG
     Route: 048
     Dates: start: 201807
  5. REVLIMID [Suspect]
     Active Substance: LENALIDOMIDE
     Dosage: 5?20 MG
     Route: 048
     Dates: start: 201907
  6. REVLIMID [Suspect]
     Active Substance: LENALIDOMIDE
     Dosage: 20?5 MG
     Route: 048
     Dates: start: 202002
  7. REVLIMID [Suspect]
     Active Substance: LENALIDOMIDE
     Dosage: 17.5 MILLIGRAM
     Route: 048
     Dates: start: 20171004
  8. REVLIMID [Suspect]
     Active Substance: LENALIDOMIDE
     Dosage: 15?20 MG
     Route: 048
     Dates: start: 202008
  9. REVLIMID [Suspect]
     Active Substance: LENALIDOMIDE
     Indication: NON-HODGKIN^S LYMPHOMA
     Dosage: 5 MILLIGRAM
     Route: 048
     Dates: start: 201404
  10. REVLIMID [Suspect]
     Active Substance: LENALIDOMIDE
     Dosage: 15 MILLIGRAM
     Route: 048
     Dates: start: 201708
  11. REVLIMID [Suspect]
     Active Substance: LENALIDOMIDE
     Dosage: 20?15 MG
     Route: 048
     Dates: start: 201904
  12. REVLIMID [Suspect]
     Active Substance: LENALIDOMIDE
     Dosage: 5?15 MG
     Route: 048
     Dates: start: 202101
  13. REVLIMID [Suspect]
     Active Substance: LENALIDOMIDE
     Route: 048
     Dates: start: 202104
  14. REVLIMID [Suspect]
     Active Substance: LENALIDOMIDE
     Dosage: 15 MILLIGRAM
     Route: 048
     Dates: start: 201603
  15. REVLIMID [Suspect]
     Active Substance: LENALIDOMIDE
     Dosage: 20?15 MG
     Route: 048
     Dates: start: 201604
  16. REVLIMID [Suspect]
     Active Substance: LENALIDOMIDE
     Dosage: 20 MILLIGRAM
     Route: 048
     Dates: start: 201612
  17. REVLIMID [Suspect]
     Active Substance: LENALIDOMIDE
     Dosage: 15?5 MG
     Route: 048
     Dates: start: 201911

REACTIONS (1)
  - Eye disorder [Recovered/Resolved]

NARRATIVE: CASE EVENT DATE: 20210412
